FAERS Safety Report 20380731 (Version 1)
Quarter: 2022Q1

REPORT INFORMATION
  Report Type: Spontaneous
  Country: JP (occurrence: JP)
  Receive Date: 20220127
  Receipt Date: 20220127
  Transmission Date: 20220423
  Serious: Yes (Other)
  Sender: FDA-Public Use
  Company Number: JP-CHUGAI-2022000971

PATIENT
  Age: 67 Year
  Sex: Female

DRUGS (2)
  1. AVASTIN [Suspect]
     Active Substance: BEVACIZUMAB
     Indication: Breast cancer
     Route: 041
     Dates: end: 202112
  2. PACLITAXEL [Suspect]
     Active Substance: PACLITAXEL
     Indication: Breast cancer
     Route: 041
     Dates: end: 202112

REACTIONS (3)
  - Drug-induced liver injury [Not Recovered/Not Resolved]
  - Ascites [Unknown]
  - Hyperammonaemia [Not Recovered/Not Resolved]

NARRATIVE: CASE EVENT DATE: 20220107
